FAERS Safety Report 6784164-0 (Version None)
Quarter: 2010Q2

REPORT INFORMATION
  Report Type: 
  Country: None (occurrence: None)
  Receive Date: 20100622
  Receipt Date: 20100611
  Transmission Date: 20101027
  Serious: Yes (Death)
  Sender: FDA-Public Use
  Company Number: DE-SANOFI-AVENTIS-2010SA033997

PATIENT
  Age: 80 Year

DRUGS (2)
  1. OXALIPLATIN [Suspect]
     Route: 042
     Dates: start: 20100601, end: 20100601
  2. CAPECITABINE [Suspect]
     Route: 048
     Dates: start: 20100601

REACTIONS (1)
  - PULMONARY EMBOLISM [None]
